FAERS Safety Report 9157092 (Version 2)
Quarter: 2013Q1

REPORT INFORMATION
  Report Type: Spontaneous
  Country: US (occurrence: US)
  Receive Date: 20130312
  Receipt Date: 20130320
  Transmission Date: 20140127
  Serious: No
  Sender: FDA-Public Use
  Company Number: US-PFIZER INC-2013080383

PATIENT
  Age: 78 Year
  Sex: Female
  Weight: 90.7 kg

DRUGS (2)
  1. LYRICA [Suspect]
     Indication: NERVE INJURY
     Dosage: 75 MG, 2X/DAY
     Route: 048
     Dates: start: 201302
  2. OXYCONTIN [Concomitant]
     Indication: PAIN IN EXTREMITY
     Dosage: 80 MG, 2X/DAY

REACTIONS (4)
  - Drug ineffective [Unknown]
  - Insomnia [Unknown]
  - Increased appetite [Unknown]
  - Dizziness [Unknown]
